FAERS Safety Report 10477860 (Version 6)
Quarter: 2015Q2

REPORT INFORMATION
  Report Type: Spontaneous
  Country: US (occurrence: US)
  Receive Date: 20140926
  Receipt Date: 20150415
  Transmission Date: 20150821
  Serious: Yes (Hospitalization, Other)
  Sender: FDA-Public Use
  Company Number: US-ALLERGAN-1405431US

PATIENT
  Age: 39 Year
  Sex: Female
  Weight: 62.13 kg

DRUGS (3)
  1. BOTOX [Suspect]
     Active Substance: ONABOTULINUMTOXINA
     Indication: FACE LIFT
     Dosage: 15 UNK, UNK
     Dates: start: 201101, end: 201101
  2. BOTOX [Suspect]
     Active Substance: ONABOTULINUMTOXINA
     Indication: SKIN WRINKLING
     Dosage: 20 UNITS, SINGLE
     Dates: start: 20120313, end: 20120313
  3. BOTOX [Suspect]
     Active Substance: ONABOTULINUMTOXINA
     Indication: SKIN WRINKLING
     Dosage: 15 UNITS, SINGLE
     Dates: start: 201106, end: 201106

REACTIONS (61)
  - Syringomyelia [Unknown]
  - Nervous system disorder [Not Recovered/Not Resolved]
  - Mass [Unknown]
  - Local swelling [Not Recovered/Not Resolved]
  - Muscular weakness [Not Recovered/Not Resolved]
  - Hair texture abnormal [Unknown]
  - Musculoskeletal stiffness [Unknown]
  - Pain [Not Recovered/Not Resolved]
  - Neuralgia [Unknown]
  - Eye irritation [Unknown]
  - Drug hypersensitivity [Unknown]
  - Rhinitis [Unknown]
  - Sneezing [Unknown]
  - Neuropathy peripheral [Unknown]
  - Foot fracture [Not Recovered/Not Resolved]
  - Malaise [Unknown]
  - Hypoaesthesia [Unknown]
  - Fatigue [Not Recovered/Not Resolved]
  - Contusion [Unknown]
  - Burning sensation [Unknown]
  - Abdominal discomfort [Unknown]
  - Intervertebral disc protrusion [Unknown]
  - Back pain [Not Recovered/Not Resolved]
  - Feeling hot [Not Recovered/Not Resolved]
  - Paraesthesia [Not Recovered/Not Resolved]
  - Neuralgia [Unknown]
  - Musculoskeletal pain [Unknown]
  - Ataxia [Unknown]
  - Coordination abnormal [Unknown]
  - Methylenetetrahydrofolate reductase gene mutation [Unknown]
  - Pain in extremity [Not Recovered/Not Resolved]
  - Dry eye [Recovered/Resolved]
  - Upper-airway cough syndrome [Unknown]
  - Limb injury [Unknown]
  - Haemorrhage [Unknown]
  - Skin texture abnormal [Unknown]
  - Arthropathy [Not Recovered/Not Resolved]
  - Vision blurred [Unknown]
  - Pain in extremity [Unknown]
  - Insomnia [Unknown]
  - Fatigue [Unknown]
  - Epistaxis [Unknown]
  - Pain in extremity [Not Recovered/Not Resolved]
  - Temperature intolerance [Unknown]
  - Asthenia [Unknown]
  - Insomnia [Unknown]
  - Antinuclear antibody positive [Unknown]
  - Brow ptosis [Unknown]
  - Nausea [Unknown]
  - Genitourinary tract infection [Unknown]
  - Venous angioma of brain [Unknown]
  - Autoimmune disorder [Not Recovered/Not Resolved]
  - Asthenia [Not Recovered/Not Resolved]
  - Asthenia [Not Recovered/Not Resolved]
  - Headache [Recovered/Resolved]
  - Nasal congestion [Unknown]
  - Patellofemoral pain syndrome [Unknown]
  - Joint dislocation [Recovered/Resolved]
  - Hypoaesthesia [Unknown]
  - Disturbance in attention [Unknown]
  - Tachycardia [Unknown]

NARRATIVE: CASE EVENT DATE: 2011
